FAERS Safety Report 7248138-8 (Version None)
Quarter: 2011Q1

REPORT INFORMATION
  Report Type: 
  Country: None (occurrence: None)
  Receive Date: 20110127
  Receipt Date: 20110124
  Transmission Date: 20110831
  Serious: Yes (Hospitalization)
  Sender: FDA-Public Use
  Company Number: CHPA2011US01523

PATIENT
  Age: 55 Year
  Sex: Female
  Weight: 71.655 kg

DRUGS (3)
  1. PRIVATE LABEL [Suspect]
     Dosage: 21 MG, QD
     Route: 062
     Dates: start: 20080101, end: 20080101
  2. PRIVATE LABEL [Suspect]
     Dosage: 21 MG, QD
     Route: 062
     Dates: start: 20101225, end: 20110121
  3. PRIVATE LABEL [Suspect]
     Indication: SMOKING CESSATION THERAPY
     Dosage: 14 MG, QD
     Route: 062
     Dates: start: 20110122

REACTIONS (4)
  - INCREASED APPETITE [None]
  - FOOD CRAVING [None]
  - WEIGHT INCREASED [None]
  - RESPIRATORY DISORDER [None]
